FAERS Safety Report 4893080-0 (Version None)
Quarter: 2005Q4

REPORT INFORMATION
  Report Type: 
  Country: None (occurrence: None)
  Receive Date: 20051223
  Receipt Date: 20051102
  Transmission Date: 20060501
  Serious: Yes (Other)
  Sender: FDA-Public Use
  Company Number: 219148

PATIENT
  Age: 71 Year
  Sex: Male

DRUGS (4)
  1. AVASTIN [Suspect]
     Indication: COLORECTAL CANCER METASTATIC
     Dates: start: 20050915
  2. OXALIPLATIN(OXALIPLATIN) [Suspect]
     Indication: COLORECTAL CANCER METASTATIC
  3. FLUOROURACIL [Suspect]
     Indication: COLORECTAL CANCER METASTATIC
  4. LEUCOVORIN [Suspect]
     Indication: COLORECTAL CANCER METASTATIC

REACTIONS (1)
  - HYPERTENSION [None]
